FAERS Safety Report 13659182 (Version 1)
Quarter: 2017Q2

REPORT INFORMATION
  Report Type: Spontaneous
  Country: US (occurrence: US)
  Receive Date: 20170616
  Receipt Date: 20170616
  Transmission Date: 20170830
  Serious: No
  Sender: FDA-Public Use
  Company Number: US-009507513-1706USA003524

PATIENT
  Sex: Female
  Weight: 49.43 kg

DRUGS (2)
  1. NEXPLANON [Suspect]
     Active Substance: ETONOGESTREL
     Dosage: 1 DF, EVERY THREE YEARS
     Route: 059
     Dates: start: 20170523, end: 20170523
  2. NEXPLANON [Suspect]
     Active Substance: ETONOGESTREL
     Dosage: 1 DF, EVERY THREE YEARS
     Route: 059
     Dates: start: 20170523

REACTIONS (3)
  - Product quality issue [Unknown]
  - No adverse event [Unknown]
  - Complication of device insertion [Recovered/Resolved]

NARRATIVE: CASE EVENT DATE: 20170523
